FAERS Safety Report 17576511 (Version 1)
Quarter: 2020Q1

REPORT INFORMATION
  Report Type: Spontaneous
  Country: US (occurrence: US)
  Receive Date: 20200324
  Receipt Date: 20200324
  Transmission Date: 20200409
  Serious: No
  Sender: FDA-Public Use
  Company Number: US-BRISTOL-MYERS SQUIBB COMPANY-BMS-2020-024702

PATIENT
  Sex: Female

DRUGS (1)
  1. ORENCIA [Suspect]
     Active Substance: ABATACEPT
     Indication: RHEUMATOID ARTHRITIS
     Dosage: 125 MG EVERY 5 DAYS
     Route: 058
     Dates: start: 20191221

REACTIONS (5)
  - Hyperhidrosis [Unknown]
  - Dyspnoea [Unknown]
  - Pruritus [Unknown]
  - Headache [Unknown]
  - Off label use [Unknown]
